FAERS Safety Report 18427289 (Version 7)
Quarter: 2021Q1

REPORT INFORMATION
  Report Type: Spontaneous
  Country: US (occurrence: US)
  Receive Date: 20201026
  Receipt Date: 20210112
  Transmission Date: 20210419
  Serious: No
  Sender: FDA-Public Use
  Company Number: US-PFIZER INC-2020410256

PATIENT
  Age: 10 Year
  Sex: Female
  Weight: 22.22 kg

DRUGS (2)
  1. GENOTROPIN MQ [Suspect]
     Active Substance: SOMATROPIN
     Indication: SHORT STATURE
     Dosage: 1.0 MG (6 DAYS A WEEK)
     Dates: start: 20200518
  2. CYPROHEPTADINE. [Concomitant]
     Active Substance: CYPROHEPTADINE
     Indication: MIGRAINE
     Dosage: UNK

REACTIONS (4)
  - Scratch [Unknown]
  - Product dose omission issue [Unknown]
  - Injury associated with device [Unknown]
  - Device use issue [Unknown]
